FAERS Safety Report 9431105 (Version 1)
Quarter: 2013Q3

REPORT INFORMATION
  Report Type: Spontaneous
  Country: GB (occurrence: GB)
  Receive Date: 20130730
  Receipt Date: 20130730
  Transmission Date: 20140515
  Serious: Yes (Other)
  Sender: FDA-Public Use
  Company Number: GB-BRISTOL-MYERS SQUIBB COMPANY-19138411

PATIENT
  Age: 50 Year
  Sex: Male

DRUGS (1)
  1. BYDUREON [Suspect]
     Indication: TYPE 2 DIABETES MELLITUS
     Route: 030
     Dates: start: 20130416, end: 20130628

REACTIONS (1)
  - Pancreatitis acute [Recovering/Resolving]
